FAERS Safety Report 20520737 (Version 1)
Quarter: 2022Q1

REPORT INFORMATION
  Report Type: Spontaneous
  Country: US (occurrence: US)
  Receive Date: 20220225
  Receipt Date: 20220225
  Transmission Date: 20220423
  Serious: Yes (Death, Life-Threatening, Hospitalization, Disabling, Other)
  Sender: FDA-Public Use
  Company Number: US-JAZZ-2022-US-000710

PATIENT
  Age: 17 Year
  Sex: Female
  Weight: 91 kg

DRUGS (10)
  1. RYLAZE [Suspect]
     Active Substance: ASPARAGINASE ERWINIA CHRYSANTHEMI (RECOMBINANT)-RYWN
     Indication: Acute lymphocytic leukaemia
     Dosage: 50 MILLIGRAM, QD (QD X 6 DOSES)
     Route: 030
     Dates: start: 20211112, end: 20211122
  2. ERWINAZE [Suspect]
     Active Substance: ASPARAGINASE ERWINIA CHRYSANTHEMI
     Indication: Acute lymphocytic leukaemia
     Dosage: 49500 IU, 1X/DAY (QD X 6 DOSES)
     Route: 042
     Dates: start: 20210709
  3. DOXORUBICIN HYDROCHLORIDE [Suspect]
     Active Substance: DOXORUBICIN HYDROCHLORIDE
     Indication: Acute lymphocytic leukaemia
     Dosage: 50 MILLIGRAM, QD
     Route: 042
     Dates: start: 20211109, end: 20211122
  4. VINCRISTINE SULFATE [Suspect]
     Active Substance: VINCRISTINE SULFATE
     Indication: Acute lymphocytic leukaemia
     Dosage: 2 MILLIGRAM, QD
     Route: 042
     Dates: start: 20210702
  5. METHOTREXATE SODIUM [Suspect]
     Active Substance: METHOTREXATE SODIUM
     Indication: Acute lymphocytic leukaemia
     Dosage: 15 MILLIGRAM, SINGLE
     Route: 037
     Dates: start: 20210621
  6. CYCLOPHOSPHAMIDE ANHYDROUS [Suspect]
     Active Substance: CYCLOPHOSPHAMIDE ANHYDROUS
     Indication: Acute lymphocytic leukaemia
     Dosage: 1980 MILLIGRAM, SINGLE
     Route: 042
     Dates: start: 20210618
  7. MERCAPTOPURINE [Suspect]
     Active Substance: MERCAPTOPURINE
     Indication: Acute lymphocytic leukaemia
     Dosage: 50 MG(MON-SAT), 25 MG (SUN)
     Route: 048
     Dates: start: 20210618
  8. PEGASPARGASE [Suspect]
     Active Substance: PEGASPARGASE
     Indication: Acute lymphocytic leukaemia
     Dosage: 3750 INTERNATIONAL UNIT
     Route: 042
     Dates: start: 20210702
  9. CYTARABINE [Suspect]
     Active Substance: CYTARABINE
     Indication: Acute lymphocytic leukaemia
     Dosage: 149 MILLIGRAM, SINGLE
     Route: 042
     Dates: start: 20210618
  10. RUXOLITINIB [Suspect]
     Active Substance: RUXOLITINIB
     Indication: Acute lymphocytic leukaemia
     Dosage: 100 MILLIGRAM, QD
     Route: 048
     Dates: start: 20210618

REACTIONS (5)
  - Enterocolitis [Fatal]
  - Hypotension [Fatal]
  - Syncope [Recovering/Resolving]
  - Venoocclusive liver disease [Not Recovered/Not Resolved]
  - Sepsis [Not Recovered/Not Resolved]

NARRATIVE: CASE EVENT DATE: 20211122
